FAERS Safety Report 21261833 (Version 1)
Quarter: 2022Q3

REPORT INFORMATION
  Report Type: Spontaneous
  Country: DE (occurrence: DE)
  Receive Date: 20220827
  Receipt Date: 20220827
  Transmission Date: 20221026
  Serious: Yes (Other)
  Sender: FDA-Public Use
  Company Number: DE-AMGEN-DEUSP2022144215

PATIENT
  Sex: Female
  Weight: 66 kg

DRUGS (18)
  1. APREMILAST [Suspect]
     Active Substance: APREMILAST
     Indication: Product used for unknown indication
     Dosage: UNK
     Route: 065
     Dates: start: 20150714
  2. PFIZER-BIONTECH COVID-19 VACCINE [Suspect]
     Active Substance: TOZINAMERAN
     Indication: Product used for unknown indication
     Dosage: UNK
     Route: 065
     Dates: start: 20210506
  3. HYDROXYCHLOROQUINE [Concomitant]
     Active Substance: HYDROXYCHLOROQUINE
     Dosage: UNK
     Dates: start: 20150714
  4. METHOTREXATE SODIUM [Concomitant]
     Active Substance: METHOTREXATE SODIUM
     Dosage: 10 MILLIGRAM
     Dates: start: 20150714
  5. SULFASALAZINE [Concomitant]
     Active Substance: SULFASALAZINE
     Dosage: UNK
     Dates: start: 20150714
  6. ORENCIA [Concomitant]
     Active Substance: ABATACEPT
  7. COSENTYX [Concomitant]
     Active Substance: SECUKINUMAB
     Dosage: UNK
     Dates: start: 20150714
  8. CIMZIA [Concomitant]
     Active Substance: CERTOLIZUMAB PEGOL
     Dosage: UNK
     Dates: start: 20150714
  9. RINVOQ [Concomitant]
     Active Substance: UPADACITINIB
     Dosage: 15 MILLIGRAM, EVERY OTHER DAY
     Dates: start: 20150714
  10. LEVOTHYROXINE [Concomitant]
     Active Substance: LEVOTHYROXINE
     Dosage: 100 MICROGRAM
  11. CANDESARTAN CILEXETIL [Concomitant]
     Active Substance: CANDESARTAN CILEXETIL
     Dosage: 8 MILLIGRAM, BID
  12. CALCITRIOL [Concomitant]
     Active Substance: CALCITRIOL
     Dosage: 0.25 (UNIT ABSENT)
  13. CHOLECALCIFEROL [Concomitant]
     Active Substance: CHOLECALCIFEROL
     Dosage: 20000 INTERNATIONAL UNIT, Q2WK
  14. FAMOTIDINE [Concomitant]
     Active Substance: FAMOTIDINE
     Dosage: 20 MILLIGRAM
  15. CANNABIS SATIVA SUBSP. INDICA TOP [Concomitant]
     Active Substance: CANNABIS SATIVA SUBSP. INDICA TOP
     Dosage: 5 DROPS TID
  16. METAMIZOLE [Concomitant]
     Active Substance: METAMIZOLE
     Dosage: UNK, AS NECESSARY
  17. PREDNISOLONE [Concomitant]
     Active Substance: PREDNISOLONE
     Dosage: 5 MILLIGRAM
  18. PREDNISOLONE [Concomitant]
     Active Substance: PREDNISOLONE
     Dosage: 20 MILLIGRAM

REACTIONS (22)
  - Psoriatic arthropathy [Unknown]
  - Hip fracture [Not Recovered/Not Resolved]
  - Drug intolerance [Unknown]
  - Asthma [Unknown]
  - Disturbance in attention [Unknown]
  - Sensory loss [Unknown]
  - Hyperhidrosis [Not Recovered/Not Resolved]
  - Gastrointestinal disorder [Not Recovered/Not Resolved]
  - Rash [Unknown]
  - Headache [Unknown]
  - Osteopenia [Recovering/Resolving]
  - Back pain [Unknown]
  - Intervertebral disc protrusion [Unknown]
  - Spinal column injury [Unknown]
  - Fibromyalgia [Unknown]
  - Thyroidectomy [Unknown]
  - Hypoparathyroidism [Unknown]
  - Adenomatous polyposis coli [Unknown]
  - Tendonitis [Unknown]
  - Arthropathy [Unknown]
  - Coronary artery disease [Unknown]
  - HLA marker study positive [Unknown]

NARRATIVE: CASE EVENT DATE: 20170101
